FAERS Safety Report 6668264-1 (Version None)
Quarter: 2010Q2

REPORT INFORMATION
  Report Type: 
  Country: None (occurrence: None)
  Receive Date: 20100405
  Receipt Date: 20100405
  Transmission Date: 20101027
  Serious: Yes (Hospitalization)
  Sender: FDA-Public Use
  Company Number: None

PATIENT
  Age: 70 Year
  Sex: Male

DRUGS (3)
  1. WARFARIN SODIUM [Suspect]
     Indication: DEEP VEIN THROMBOSIS
     Dates: start: 20100131, end: 20100314
  2. GEMCITABINE HCL [Suspect]
     Indication: NEOPLASM MALIGNANT
     Dosage: 2000 MG QWEEK IV
     Dates: start: 20100304, end: 20100311
  3. GEMCITABINE HCL [Suspect]

REACTIONS (7)
  - DIARRHOEA [None]
  - HAEMORRHAGE INTRACRANIAL [None]
  - HEADACHE [None]
  - LETHARGY [None]
  - NAUSEA [None]
  - RECTAL HAEMORRHAGE [None]
  - VOMITING [None]
